FAERS Safety Report 4528789-1 (Version None)
Quarter: 2004Q4

REPORT INFORMATION
  Report Type: 
  Country: None (occurrence: None)
  Receive Date: 20041214
  Receipt Date: 20041129
  Transmission Date: 20050328
  Serious: Yes (Hospitalization)
  Sender: FDA-Public Use
  Company Number: 2004CG02328

PATIENT
  Age: 71 Year
  Sex: Male
  Weight: 70 kg

DRUGS (6)
  1. EMLA [Suspect]
     Indication: LOCAL ANAESTHESIA
     Dates: start: 20041007, end: 20041007
  2. EMLA [Suspect]
     Indication: LOCAL ANAESTHESIA
     Dates: start: 20041008, end: 20041008
  3. EMLA [Suspect]
     Indication: LOCAL ANAESTHESIA
     Dates: start: 20041011, end: 20041011
  4. BETADINE [Suspect]
     Indication: INFECTION PROPHYLAXIS
     Dates: start: 20041007, end: 20041007
  5. BETADINE [Suspect]
     Indication: INFECTION PROPHYLAXIS
     Dates: start: 20041008, end: 20041008
  6. BETADINE [Suspect]
     Indication: INFECTION PROPHYLAXIS
     Dates: start: 20041011, end: 20041011

REACTIONS (13)
  - ANAESTHETIC COMPLICATION [None]
  - BACK PAIN [None]
  - BLOOD CULTURE POSITIVE [None]
  - DRUG INTERACTION [None]
  - EPIDURITIS [None]
  - IATROGENIC INJURY [None]
  - NOSOCOMIAL INFECTION [None]
  - NUCLEAR MAGNETIC RESONANCE IMAGING ABNORMAL [None]
  - OEDEMA [None]
  - OSTEOARTHRITIS [None]
  - POST PROCEDURAL PAIN [None]
  - PUNCTURE SITE REACTION [None]
  - STAPHYLOCOCCAL INFECTION [None]
